FAERS Safety Report 6645422-3 (Version None)
Quarter: 2010Q1

REPORT INFORMATION
  Report Type: 
  Country: None (occurrence: None)
  Receive Date: 20100322
  Receipt Date: 20100316
  Transmission Date: 20100710
  Serious: Yes (Hospitalization, Other)
  Sender: FDA-Public Use
  Company Number: ES-BRISTOL-MYERS SQUIBB COMPANY-14993885

PATIENT
  Age: 40 Year
  Sex: Male

DRUGS (4)
  1. ABILIFY [Suspect]
     Route: 048
  2. VALPROIC ACID [Suspect]
     Dosage: TAKEN AS CONMED ALSO
  3. DEPAKENE [Concomitant]
  4. CLONAZEPAM [Concomitant]

REACTIONS (1)
  - HAEMOLYTIC ANAEMIA [None]
